FAERS Safety Report 6815735-0 (Version None)
Quarter: 2010Q3

REPORT INFORMATION
  Report Type: 
  Country: None (occurrence: None)
  Receive Date: 20100702
  Receipt Date: 20100622
  Transmission Date: 20110219
  Serious: Yes (Other)
  Sender: FDA-Public Use
  Company Number: JP-AMGEN-US412613

PATIENT
  Sex: Female
  Weight: 48 kg

DRUGS (4)
  1. ENBREL [Suspect]
     Indication: RHEUMATOID ARTHRITIS
     Route: 058
     Dates: start: 20060601, end: 20070111
  2. ENBREL [Suspect]
     Route: 058
     Dates: start: 20070203
  3. PNEUMOCOCCAL VACCINE [Suspect]
     Indication: IMMUNISATION
  4. SULFASALAZINE [Concomitant]
     Dosage: UNSPECIFIED
     Dates: start: 19960101

REACTIONS (1)
  - PNEUMONIA PNEUMOCOCCAL [None]
